FAERS Safety Report 13504035 (Version 5)
Quarter: 2017Q3

REPORT INFORMATION
  Report Type: Spontaneous
  Country: JP (occurrence: JP)
  Receive Date: 20170502
  Receipt Date: 20170808
  Transmission Date: 20171127
  Serious: Yes (Hospitalization, Other)
  Sender: FDA-Public Use
  Company Number: JP-009507513-1704JPN002308J

PATIENT
  Age: 65 Year
  Sex: Female
  Weight: 36 kg

DRUGS (7)
  1. RESPLEN [Concomitant]
     Active Substance: EPRAZINONE
     Indication: LUNG ADENOCARCINOMA STAGE IV
     Dosage: 20.0 MG, BID
     Route: 048
     Dates: start: 20170422, end: 20170422
  2. LOXOPROFEN [Concomitant]
     Active Substance: LOXOPROFEN
     Indication: LUNG ADENOCARCINOMA STAGE IV
     Dosage: 60.0 MG, TID
     Route: 048
  3. MS CONTIN [Suspect]
     Active Substance: MORPHINE SULFATE
     Indication: LUNG ADENOCARCINOMA STAGE IV
     Dosage: 10.0 MG, BID
     Route: 048
     Dates: start: 20170420
  4. OPSO [Concomitant]
     Active Substance: MORPHINE HYDROCHLORIDE
     Indication: LUNG ADENOCARCINOMA STAGE IV
     Dosage: 5.0 MG, QD
     Route: 048
     Dates: start: 20170420, end: 20170420
  5. CYTOTEC [Concomitant]
     Active Substance: MISOPROSTOL
     Indication: PROPHYLAXIS
     Dosage: 200 MG, TID
     Route: 048
  6. KEYTRUDA [Suspect]
     Active Substance: PEMBROLIZUMAB
     Indication: LUNG ADENOCARCINOMA STAGE IV
     Dosage: 200 MG, Q3W
     Route: 041
     Dates: start: 20170419, end: 20170510
  7. CALONAL [Concomitant]
     Active Substance: ACETAMINOPHEN
     Indication: LUNG ADENOCARCINOMA STAGE IV
     Dosage: 400.0 MG, QD
     Route: 048
     Dates: start: 20170419, end: 20170419

REACTIONS (10)
  - Tracheal stenosis [Recovered/Resolved]
  - Anaemia [Recovering/Resolving]
  - Diarrhoea [Recovered/Resolved]
  - Respiratory tract infection [Recovered/Resolved]
  - General physical health deterioration [Not Recovered/Not Resolved]
  - Malaise [Recovered/Resolved]
  - Decreased appetite [Recovered/Resolved]
  - Nausea [Recovered/Resolved]
  - Constipation [Recovered/Resolved]
  - Vomiting [Recovered/Resolved]

NARRATIVE: CASE EVENT DATE: 20170420
